FAERS Safety Report 6749869-6 (Version None)
Quarter: 2010Q2

REPORT INFORMATION
  Report Type: 
  Country: None (occurrence: None)
  Receive Date: 20100601
  Receipt Date: 20100518
  Transmission Date: 20101027
  Serious: Yes (Other)
  Sender: FDA-Public Use
  Company Number: US-ELI_LILLY_AND_COMPANY-US201004005247

PATIENT
  Sex: Male
  Weight: 102.95 kg

DRUGS (7)
  1. EFFIENT [Suspect]
     Indication: ACUTE CORONARY SYNDROME
     Dosage: 1 D/F, UNK
     Dates: start: 20100414
  2. EFFIENT [Suspect]
     Dosage: 10 MG, UNKNOWN
     Dates: start: 20100414
  3. ANGIOMAX [Concomitant]
     Indication: INTRACARDIAC THROMBUS
     Dates: start: 20100414
  4. INTEGRILIN [Concomitant]
     Indication: INTRACARDIAC THROMBUS
     Dates: start: 20100414
  5. ASPIRIN [Concomitant]
     Dosage: 325 MG, UNK
     Route: 048
     Dates: start: 20100414
  6. COREG [Concomitant]
     Dosage: 3.125 MG, 2/D
     Route: 048
  7. LIPITOR [Concomitant]
     Dosage: 80 MG, UNK
     Route: 048

REACTIONS (1)
  - ISCHAEMIC STROKE [None]
